FAERS Safety Report 19624953 (Version 4)
Quarter: 2021Q3

REPORT INFORMATION
  Report Type: Report from Study
  Country: CN (occurrence: CN)
  Receive Date: 20210728
  Receipt Date: 20210930
  Transmission Date: 20211014
  Serious: Yes (Hospitalization)
  Sender: FDA-Public Use
  Company Number: CN-PFIZER INC-2021900312

PATIENT
  Age: 48 Year
  Sex: Female

DRUGS (16)
  1. PACLITAXEL. [Suspect]
     Active Substance: PACLITAXEL
     Indication: TRIPLE NEGATIVE BREAST CANCER
     Dosage: MOST RECENT DOSE PRIOR TO SAE ONSET: 14APR2021 144 MG (80 MG/M2,1 IN 1 WK), INFUSION
     Route: 042
     Dates: start: 20210129
  2. ATEZOLIZUMAB. [Suspect]
     Active Substance: ATEZOLIZUMAB
     Dosage: 840 MG, EVERY 2 WEEKS
     Route: 041
     Dates: start: 20210513, end: 20210513
  3. CYCLOPHOSPHAMIDE. [Suspect]
     Active Substance: CYCLOPHOSPHAMIDE
     Dosage: 1.074 G, EVERY 2 WEEKS
     Route: 042
     Dates: start: 20210513, end: 20210513
  4. EPIRUBICIN HCL [Suspect]
     Active Substance: EPIRUBICIN HYDROCHLORIDE
     Indication: TRIPLE NEGATIVE BREAST CANCER
     Dosage: MOST RECENT DOSE PRIOR TO SAE ONSET: 04JUN2021 128 MG (90 MG/M2, 1 IN 2 WK)
     Route: 042
     Dates: start: 20210413
  5. ATEZOLIZUMAB. [Suspect]
     Active Substance: ATEZOLIZUMAB
     Dosage: 840 MG, EVERY 2 WEEKS
     Route: 041
     Dates: start: 20210604, end: 20210604
  6. FILGRASTIM [Suspect]
     Active Substance: FILGRASTIM
     Dosage: CYCLE 4 VISIT 2 (6 MG,1 IN 2 WK), INJECTION, SOLUTION
     Route: 058
     Dates: start: 20210612, end: 20210612
  7. EPIRUBICIN HCL [Suspect]
     Active Substance: EPIRUBICIN HYDROCHLORIDE
     Dosage: 160 MG (90 MG/M2), EVERY 2 WEEKS
     Route: 042
     Dates: start: 20210421, end: 20210421
  8. EPIRUBICIN HCL [Suspect]
     Active Substance: EPIRUBICIN HYDROCHLORIDE
     Dosage: 160 MG, EVERY 2 WEEKS
     Route: 042
     Dates: start: 20210513, end: 20210513
  9. ATEZOLIZUMAB. [Suspect]
     Active Substance: ATEZOLIZUMAB
     Dosage: 840 MG, EVERY 2 WEEKS, 28 DAYS AS A CYCLE.
     Route: 041
     Dates: start: 20210421, end: 20210421
  10. CYCLOPHOSPHAMIDE. [Suspect]
     Active Substance: CYCLOPHOSPHAMIDE
     Dosage: 0.855 G, EVERY 2 WEEKS
     Route: 042
     Dates: start: 20210604, end: 20210604
  11. EPIRUBICIN HCL [Suspect]
     Active Substance: EPIRUBICIN HYDROCHLORIDE
     Dosage: 128 MG, EVERY 2 WEEKS
     Route: 042
     Dates: start: 20210604, end: 20210604
  12. PACLITAXEL. [Suspect]
     Active Substance: PACLITAXEL
     Dosage: 144 MG (80 MG/M2),1 IN 1 WK
     Route: 042
     Dates: start: 20210414, end: 20210414
  13. CYCLOPHOSPHAMIDE. [Suspect]
     Active Substance: CYCLOPHOSPHAMIDE
     Indication: TRIPLE NEGATIVE BREAST CANCER
     Dosage: MOST RECENT DOSE PRIOR TO SAE ONSET: 04JUN2021 855 MG (600 MG/M2, 1 IN 2 WK), INFUSION
     Route: 042
     Dates: start: 20210421, end: 20210421
  14. METHYLPREDNISOLONE. [Concomitant]
     Active Substance: METHYLPREDNISOLONE
     Dosage: 8 MG, 1X/DAY (1 IN 1 D)
     Route: 048
  15. FILGRASTIM [Suspect]
     Active Substance: FILGRASTIM
     Indication: TRIPLE NEGATIVE BREAST CANCER
     Dosage: CYCLE 4 VISIT 1 (6 MG,1 IN 2 WK), INJECTION, SOLUTION
     Route: 058
     Dates: start: 20210423, end: 20210423
  16. ATEZOLIZUMAB. [Suspect]
     Active Substance: ATEZOLIZUMAB
     Indication: TRIPLE NEGATIVE BREAST CANCER
     Dosage: MOST RECENT DOSE : 04JUN2021 840 MG(840 MG,1 IN 2 WK), 28 DAYS AS A CYCLE, INFUSION, SOLUTION
     Route: 041
     Dates: start: 20210129, end: 20210129

REACTIONS (1)
  - Adrenal disorder [Not Recovered/Not Resolved]

NARRATIVE: CASE EVENT DATE: 20210623
